FAERS Safety Report 12369218 (Version 1)
Quarter: 2016Q2

REPORT INFORMATION
  Report Type: Report from Study
  Country: CR (occurrence: CR)
  Receive Date: 20160513
  Receipt Date: 20160513
  Transmission Date: 20160815
  Serious: Yes (Other)
  Sender: FDA-Public Use
  Company Number: PHHY2016CR064684

PATIENT
  Age: 70 Year
  Sex: Female

DRUGS (1)
  1. CO-DIOVAN [Suspect]
     Active Substance: HYDROCHLOROTHIAZIDE\VALSARTAN
     Indication: PRODUCT USED FOR UNKNOWN INDICATION
     Dosage: 0.5 DF (VALSARTAN 160 MG, HYDROCHLOROTHIAZIDE 12.5 MG), UNK
     Route: 065

REACTIONS (3)
  - Myocardial infarction [Unknown]
  - Wrong technique in product usage process [Unknown]
  - Cardiac disorder [Unknown]
